FAERS Safety Report 24255070 (Version 3)
Quarter: 2024Q3

REPORT INFORMATION
  Report Type: Report from Study
  Country: KR (occurrence: KR)
  Receive Date: 20240827
  Receipt Date: 20240906
  Transmission Date: 20241016
  Serious: Yes (Death, Other)
  Sender: TAKEDA
  Company Number: KR-TAKEDA-2024TUS084999

PATIENT
  Age: 76 Year
  Sex: Female

DRUGS (2)
  1. MOBOCERTINIB [Suspect]
     Active Substance: MOBOCERTINIB
     Indication: Non-small cell lung cancer
     Dosage: 80 MILLIGRAM
     Route: 048
     Dates: start: 20240321, end: 20240731
  2. MOBOCERTINIB [Suspect]
     Active Substance: MOBOCERTINIB
     Indication: EGFR gene mutation

REACTIONS (8)
  - Non-small cell lung cancer [Fatal]
  - Cerebral haemorrhage [Unknown]
  - Brain oedema [Unknown]
  - Blood creatinine abnormal [Unknown]
  - Cognitive disorder [Unknown]
  - Gait disturbance [Unknown]
  - Platelet count increased [Unknown]
  - Asthenia [Unknown]
